FAERS Safety Report 4534938-1 (Version None)
Quarter: 2004Q4

REPORT INFORMATION
  Report Type: 
  Country: None (occurrence: None)
  Receive Date: 20041222
  Receipt Date: 20040827
  Transmission Date: 20050328
  Serious: No
  Sender: FDA-Public Use
  Company Number: US-BRISTOL-MYERS SQUIBB COMPANY-12685475

PATIENT
  Age: 62 Year
  Sex: Male
  Weight: 100 kg

DRUGS (2)
  1. PRAVACHOL [Suspect]
     Indication: BLOOD CHOLESTEROL INCREASED
     Route: 048
     Dates: start: 20040810, end: 20040826
  2. BENICAR [Concomitant]

REACTIONS (1)
  - DRUG INEFFECTIVE [None]
